FAERS Safety Report 7629102-3 (Version None)
Quarter: 2011Q3

REPORT INFORMATION
  Report Type: 
  Country: None (occurrence: None)
  Receive Date: 20110722
  Receipt Date: 20110722
  Transmission Date: 20111222
  Serious: Yes (Life-Threatening)
  Sender: FDA-Public Use
  Company Number: None

PATIENT
  Age: 47 Year
  Sex: Male
  Weight: 82.1 kg

DRUGS (1)
  1. BENZOCAINE HURRICANE SPRAY [Suspect]

REACTIONS (2)
  - METHAEMOGLOBINAEMIA [None]
  - HYPOXIA [None]
